FAERS Safety Report 9474697 (Version 3)
Quarter: 2014Q1

REPORT INFORMATION
  Report Type: Report from Study
  Country: ES (occurrence: ES)
  Receive Date: 20130823
  Receipt Date: 20140128
  Transmission Date: 20141002
  Serious: Yes (Other)
  Sender: FDA-Public Use
  Company Number: ES-VERTEX PHARMACEUTICALS INC-2013-009023

PATIENT
  Age: 43 Year
  Sex: Female

DRUGS (5)
  1. TELAPREVIR [Suspect]
     Indication: HEPATITIS C
     Dosage: UNK
     Route: 048
     Dates: start: 201209
  2. USTEKINUMAB [Suspect]
     Indication: PSORIATIC ARTHROPATHY
     Dosage: DOSAGE FORM: LIQUID
     Route: 058
  3. USTEKINUMAB [Suspect]
     Indication: PSORIASIS
     Dosage: DOSAGE FORM: LIQUID
     Route: 058
  4. RIBAVIRIN [Suspect]
     Indication: HEPATITIS C
     Dosage: DOSAGE FORM: UNSPECIFIED, WITHDRAWN DURING WEEK 14
     Route: 065
     Dates: start: 201209
  5. PEG-INTERFERON [Suspect]
     Indication: HEPATITIS C
     Dosage: DOSAGE FORM: INJECTION, WITHDRAWN ON WEEK 14
     Route: 065
     Dates: start: 201209

REACTIONS (1)
  - Urticaria [Unknown]
